FAERS Safety Report 21616943 (Version 3)
Quarter: 2023Q2

REPORT INFORMATION
  Report Type: Spontaneous
  Country: US (occurrence: US)
  Receive Date: 20221118
  Receipt Date: 20230510
  Transmission Date: 20230722
  Serious: No
  Sender: FDA-Public Use
  Company Number: US-INCYTE CORPORATION-2022IN010935

PATIENT

DRUGS (2)
  1. JAKAFI [Suspect]
     Active Substance: RUXOLITINIB
     Indication: Polycythaemia vera
     Route: 048
  2. VONJO [Concomitant]
     Active Substance: PACRITINIB
     Indication: Product used for unknown indication
     Route: 065

REACTIONS (11)
  - Fatigue [Unknown]
  - Asthenia [Unknown]
  - Blood uric acid increased [Unknown]
  - Spleen disorder [Unknown]
  - Abdominal pain upper [Unknown]
  - Eating disorder [Unknown]
  - Emotional disorder [Unknown]
  - Gastrointestinal motility disorder [Unknown]
  - Drug ineffective [Unknown]
  - Nausea [Unknown]
  - Constipation [Unknown]
